FAERS Safety Report 7731320-0 (Version None)
Quarter: 2011Q3

REPORT INFORMATION
  Report Type: 
  Country: None (occurrence: None)
  Receive Date: 20110906
  Receipt Date: 20110826
  Transmission Date: 20111222
  Serious: Yes (Other)
  Sender: FDA-Public Use
  Company Number: US-ASTRAZENECA-2011SE51756

PATIENT
  Age: 78 Year
  Sex: Female

DRUGS (4)
  1. BONIVA [Concomitant]
  2. CIPROFLOXACIN [Concomitant]
  3. NEXIUM [Suspect]
     Route: 048
  4. TOPROL-XL [Suspect]
     Route: 048

REACTIONS (5)
  - HAEMATURIA [None]
  - BREAST CANCER [None]
  - NEPHROLITHIASIS [None]
  - ABDOMINAL PAIN [None]
  - URINARY TRACT INFECTION [None]
